FAERS Safety Report 12968240 (Version 1)
Quarter: 2016Q4

REPORT INFORMATION
  Report Type: Spontaneous
  Country: US (occurrence: US)
  Receive Date: 20161123
  Receipt Date: 20161123
  Transmission Date: 20170207
  Serious: Yes (Life-Threatening, Hospitalization, Disabling)
  Sender: FDA-Public Use
  Company Number: None

PATIENT
  Age: 53 Year
  Sex: Female
  Weight: 61.2 kg

DRUGS (4)
  1. FLOVENT [Suspect]
     Active Substance: FLUTICASONE PROPIONATE
     Indication: PNEUMONITIS
     Dosage: ?          OTHER STRENGTH:UG;QUANTITY:2 PUFF(S); EVERY 12 HOURS?
     Route: 055
  2. IBUPROFEN. [Concomitant]
     Active Substance: IBUPROFEN
  3. ALBUTEROL. [Concomitant]
     Active Substance: ALBUTEROL
  4. FLOVENT [Suspect]
     Active Substance: FLUTICASONE PROPIONATE
     Indication: AUTOIMMUNE DISORDER
     Dosage: ?          OTHER STRENGTH:UG;QUANTITY:2 PUFF(S); EVERY 12 HOURS?
     Route: 055

REACTIONS (4)
  - Unevaluable event [None]
  - Incorrect drug administration duration [None]
  - Increased viscosity of bronchial secretion [None]
  - Cough [None]

NARRATIVE: CASE EVENT DATE: 20161122
